FAERS Safety Report 4860720-1 (Version None)
Quarter: 2005Q4

REPORT INFORMATION
  Report Type: 
  Country: None (occurrence: None)
  Receive Date: 20051220
  Receipt Date: 20051207
  Transmission Date: 20060501
  Serious: Yes (Life-Threatening, Hospitalization)
  Sender: FDA-Public Use
  Company Number: JP-BOEHRINGER INGELHEIM PHARMACEUTICALS, INC.-2005-BP-21073NB

PATIENT
  Sex: Male
  Weight: 51 kg

DRUGS (2)
  1. MEXITIL [Suspect]
     Indication: ARRHYTHMIA
     Route: 048
     Dates: start: 20050701, end: 20050806
  2. DISOPYRAMIDE [Suspect]
     Indication: ARRHYTHMIA
     Route: 048
     Dates: start: 20050715, end: 20050806

REACTIONS (2)
  - DRUG HYPERSENSITIVITY [None]
  - SKIN TEST POSITIVE [None]
